FAERS Safety Report 13182947 (Version 2)
Quarter: 2017Q2

REPORT INFORMATION
  Report Type: Report from Study
  Country: US (occurrence: US)
  Receive Date: 20170203
  Receipt Date: 20170406
  Transmission Date: 20170830
  Serious: Yes (Hospitalization)
  Sender: FDA-Public Use
  Company Number: US-UCBSA-2017003641

PATIENT
  Age: 45 Year
  Sex: Male
  Weight: 104 kg

DRUGS (7)
  1. LACOSAMIDE. [Suspect]
     Active Substance: LACOSAMIDE
     Dosage: 300 MG, 2X/DAY (BID) (MORE PILLS THAN WHAT WAS SUPPOSED TO TAKE)
     Route: 048
  2. LEXAPRO [Concomitant]
     Active Substance: ESCITALOPRAM OXALATE
     Indication: PRODUCT USED FOR UNKNOWN INDICATION
     Dosage: UNK
     Route: 048
     Dates: start: 2009
  3. LACOSAMIDE. [Suspect]
     Active Substance: LACOSAMIDE
     Dosage: 150 MG, 2X/DAY (BID)
     Route: 048
  4. NEURONTIN [Concomitant]
     Active Substance: GABAPENTIN
     Indication: PAIN
     Dosage: 300 MG, 3X/DAY (TID)
     Route: 048
  5. KEPPRA [Suspect]
     Active Substance: LEVETIRACETAM
     Indication: SEIZURE
     Dosage: 750 MG, 2X/DAY (BID)
     Route: 048
     Dates: start: 2010
  6. LAMICTAL [Concomitant]
     Active Substance: LAMOTRIGINE
     Indication: SEIZURE
     Dosage: 150 MG, 2X/DAY (BID)
     Route: 048
     Dates: start: 2011
  7. LACOSAMIDE. [Suspect]
     Active Substance: LACOSAMIDE
     Indication: PARTIAL SEIZURES
     Dosage: 50 MG, 2X/DAY (BID)
     Route: 048
     Dates: start: 201304

REACTIONS (4)
  - Memory impairment [Not Recovered/Not Resolved]
  - Diplopia [Unknown]
  - Accidental overdose [Unknown]
  - Psychiatric symptom [Unknown]

NARRATIVE: CASE EVENT DATE: 201611
